FAERS Safety Report 11312653 (Version 1)
Quarter: 2015Q3

REPORT INFORMATION
  Report Type: Spontaneous
  Country: US (occurrence: US)
  Receive Date: 20150727
  Receipt Date: 20150727
  Transmission Date: 20151125
  Serious: No
  Sender: FDA-Public Use
  Company Number: US-ABBVIE-14P-163-1303006-00

PATIENT
  Sex: Female

DRUGS (2)
  1. SYNTHROID [Suspect]
     Active Substance: LEVOTHYROXINE SODIUM
     Indication: HYPOTHYROIDISM
     Route: 065
  2. NECON [Concomitant]
     Active Substance: ETHINYL ESTRADIOL\NORETHINDRONE
     Indication: CONTRACEPTION

REACTIONS (9)
  - Ovarian cyst [Unknown]
  - Blood thyroid stimulating hormone decreased [Unknown]
  - Energy increased [Unknown]
  - Hyperthyroidism [Unknown]
  - Anxiety [Not Recovered/Not Resolved]
  - Blood cortisol increased [Unknown]
  - Blood thyroid stimulating hormone increased [Unknown]
  - Panic attack [Recovered/Resolved]
  - Migraine [Unknown]

NARRATIVE: CASE EVENT DATE: 20130811
